FAERS Safety Report 4827233-4 (Version None)
Quarter: 2005Q4

REPORT INFORMATION
  Report Type: 
  Country: None (occurrence: None)
  Receive Date: 20051114
  Receipt Date: 20051102
  Transmission Date: 20060501
  Serious: Yes (Other)
  Sender: FDA-Public Use
  Company Number: US-AVENTIS-200518879US

PATIENT
  Sex: Male
  Weight: 90.7 kg

DRUGS (8)
  1. LANTUS [Suspect]
     Indication: DIABETES MELLITUS NON-INSULIN-DEPENDENT
     Dosage: DOSE UNIT: UNITS
     Route: 058
  2. LANTUS [Suspect]
     Dosage: DOSE UNIT: UNITS
     Route: 058
  3. GLUCOTROL [Concomitant]
     Dosage: DOSE: UNK
  4. VALIUM [Concomitant]
     Dosage: DOSE: UNK
  5. PREVACID [Concomitant]
     Dosage: DOSE: UNK
  6. ASPIRIN [Concomitant]
     Dosage: DOSE: UNK
  7. ALTACE [Concomitant]
     Dosage: DOSE: UNK
  8. MIRALAX [Concomitant]
     Dosage: DOSE: UNK

REACTIONS (6)
  - ARTHRALGIA [None]
  - BACK PAIN [None]
  - BLOOD GLUCOSE INCREASED [None]
  - GLYCOSYLATED HAEMOGLOBIN INCREASED [None]
  - NIGHT SWEATS [None]
  - OSTEOARTHRITIS [None]
